FAERS Safety Report 5968284-6 (Version None)
Quarter: 2008Q4

REPORT INFORMATION
  Report Type: 
  Country: None (occurrence: None)
  Receive Date: 20081126
  Receipt Date: 20081119
  Transmission Date: 20090506
  Serious: Yes (Hospitalization)
  Sender: FDA-Public Use
  Company Number: HU-BRISTOL-MYERS SQUIBB COMPANY-14420095

PATIENT
  Age: 61 Year
  Sex: Male
  Weight: 56 kg

DRUGS (4)
  1. CETUXIMAB [Suspect]
     Indication: GASTROOESOPHAGEAL CANCER
     Route: 042
     Dates: start: 20080722, end: 20080916
  2. CISPLATIN [Suspect]
     Indication: GASTROOESOPHAGEAL CANCER
     Dosage: TAKEN ON DAY1 OF CYCLE
     Dates: start: 20080722
  3. CAPECITABINE [Suspect]
     Indication: GASTROOESOPHAGEAL CANCER
     Dosage: TAKEN ON DAY 1-15
     Route: 048
     Dates: start: 20080722
  4. PERINDOPRIL [Concomitant]
     Dates: start: 20070101

REACTIONS (1)
  - ANAEMIA [None]
